FAERS Safety Report 22058215 (Version 1)
Quarter: 2023Q1

REPORT INFORMATION
  Report Type: Report from Study
  Country: US (occurrence: US)
  Receive Date: 20230303
  Receipt Date: 20230303
  Transmission Date: 20230417
  Serious: Yes (Hospitalization)
  Sender: FDA-Public Use
  Company Number: US-JNJFOC-20211031123

PATIENT
  Sex: Male
  Weight: 70.9 kg

DRUGS (1)
  1. ERDAFITINIB [Suspect]
     Active Substance: ERDAFITINIB
     Indication: Central nervous system neoplasm
     Dosage: TOTAL DOSE ADMINISTERED DURING COURSE WAS REPORTED AS 138 MG 4.7 MG/M2
     Route: 048
     Dates: start: 20210303

REACTIONS (2)
  - Enterocolitis bacterial [Not Recovered/Not Resolved]
  - Atrial thrombosis [Not Recovered/Not Resolved]

NARRATIVE: CASE EVENT DATE: 20210324
